FAERS Safety Report 12493467 (Version 3)
Quarter: 2016Q3

REPORT INFORMATION
  Report Type: Spontaneous
  Country: CA (occurrence: CA)
  Receive Date: 20160623
  Receipt Date: 20160824
  Transmission Date: 20161109
  Serious: Yes (Other)
  Sender: FDA-Public Use
  Company Number: CA-EMD SERONO-8090552

PATIENT
  Age: 44 Year
  Sex: Male

DRUGS (1)
  1. REBIF [Suspect]
     Active Substance: INTERFERON BETA-1A
     Indication: MULTIPLE SCLEROSIS
     Dosage: START DATE: 4TH QUARTER OF 2014
     Route: 058
     Dates: start: 2014, end: 2016

REACTIONS (18)
  - Fatigue [Unknown]
  - Porphyria non-acute [Unknown]
  - Dysarthria [Unknown]
  - Hypoaesthesia [Unknown]
  - Blister [Unknown]
  - Pain [Unknown]
  - Vision blurred [Unknown]
  - Blood pressure increased [Unknown]
  - Muscle spasms [Unknown]
  - Clumsiness [Unknown]
  - Drug ineffective [Unknown]
  - Pain in extremity [Unknown]
  - Burning sensation [Unknown]
  - Nocturia [Unknown]
  - Onychomadesis [Unknown]
  - Skin reaction [Unknown]
  - Central nervous system lesion [Unknown]
  - Onychalgia [Unknown]

NARRATIVE: CASE EVENT DATE: 201604
